FAERS Safety Report 8306447-5 (Version None)
Quarter: 2012Q2

REPORT INFORMATION
  Report Type: 
  Country: None (occurrence: None)
  Receive Date: 20120424
  Receipt Date: 20120418
  Transmission Date: 20120825
  Serious: Yes (Other)
  Sender: FDA-Public Use
  Company Number: GXKR2012DE001523

PATIENT
  Age: 67 Year
  Sex: Male
  Weight: 80 kg

DRUGS (3)
  1. VERAPAMIL [Concomitant]
     Indication: HYPERTENSION
     Dosage: 1-1-0
     Route: 048
  2. LOSARTAN POTASSIUM [Suspect]
     Indication: HYPERTENSION
     Dosage: 25 MG, BID
     Route: 048
     Dates: start: 20120131, end: 20120217
  3. VERAPAMIL [Concomitant]
     Dosage: 120 MG, QD
     Route: 048

REACTIONS (2)
  - RETINAL OEDEMA [None]
  - MACULAR DEGENERATION [None]
